FAERS Safety Report 4743646-3 (Version None)
Quarter: 2005Q3

REPORT INFORMATION
  Report Type: 
  Country: None (occurrence: None)
  Receive Date: 20050809
  Receipt Date: 20050725
  Transmission Date: 20060218
  Serious: Yes (Hospitalization)
  Sender: FDA-Public Use
  Company Number: DSA_26794_2005

PATIENT
  Age: 81 Year
  Sex: Female

DRUGS (10)
  1. LORAZEPAM [Suspect]
     Indication: ANXIETY
     Dosage: 1 MG Q DAY PO
     Route: 048
     Dates: end: 20041014
  2. LASIX [Suspect]
     Indication: HYPERTENSION
     Dosage: DF PO
     Route: 048
  3. PROZAC [Suspect]
     Indication: DYSTHYMIC DISORDER
     Dosage: DF PO
     Route: 048
     Dates: end: 20041016
  4. TOPALGIC [Suspect]
     Dosage: DF PO
     Route: 048
     Dates: end: 20041001
  5. OMEPRAZOLE [Concomitant]
  6. DIFFU K [Concomitant]
  7. DISCORTRINE [Concomitant]
  8. PREVISCAN [Concomitant]
  9. ALDACTONE [Concomitant]
  10. LEXOMIL [Concomitant]

REACTIONS (10)
  - AGITATION [None]
  - ATRIAL FIBRILLATION [None]
  - BUNDLE BRANCH BLOCK LEFT [None]
  - CEREBELLAR ATROPHY [None]
  - COMPUTERISED TOMOGRAM ABNORMAL [None]
  - CONFUSIONAL STATE [None]
  - ELECTROCARDIOGRAM T WAVE INVERSION [None]
  - ELECTROENCEPHALOGRAM ABNORMAL [None]
  - HEMIPLEGIA [None]
  - HYPONATRAEMIA [None]
